FAERS Safety Report 5897234-6 (Version None)
Quarter: 2008Q3

REPORT INFORMATION
  Report Type: 
  Country: None (occurrence: None)
  Receive Date: 20080923
  Receipt Date: 20080911
  Transmission Date: 20090109
  Serious: Yes (Death, Other)
  Sender: FDA-Public Use
  Company Number: 52351

PATIENT
  Age: 57 Year
  Sex: Male

DRUGS (1)
  1. CYCLOSPORINE [Suspect]
     Indication: IMMUNOSUPPRESSANT DRUG THERAPY
     Dosage: 5KM/KG

REACTIONS (11)
  - ACTINIC KERATOSIS [None]
  - BASAL CELL CARCINOMA [None]
  - BOWEN'S DISEASE [None]
  - ERYSIPELAS [None]
  - IMPAIRED HEALING [None]
  - LYMPHANGIOSIS CARCINOMATOSA [None]
  - MALIGNANT NEOPLASM PROGRESSION [None]
  - SKIN GRAFT FAILURE [None]
  - SKIN PAPILLOMA [None]
  - SQUAMOUS CELL CARCINOMA OF SKIN [None]
  - TRANSPLANT [None]
